FAERS Safety Report 16167088 (Version 1)
Quarter: 2019Q2

REPORT INFORMATION
  Report Type: Other
  Country: IE (occurrence: IE)
  Receive Date: 20190408
  Receipt Date: 20190408
  Transmission Date: 20190711
  Serious: Yes (Other)
  Sender: FDA-Public Use
  Company Number: IE-CELLTRION INC.-2019IE020084

PATIENT

DRUGS (2)
  1. INFLIXIMAB (UNKNOWN) [Suspect]
     Active Substance: INFLIXIMAB
     Indication: CROHN^S DISEASE
     Dosage: 2ND DOSE INDUCTION PHASE
     Route: 042
     Dates: start: 20190308, end: 20190308
  2. HYDROCORTISONE (GENERIC) [Concomitant]
     Indication: PROPHYLAXIS
     Dosage: INDUCTION PHASE
     Dates: start: 20190308, end: 20190308

REACTIONS (3)
  - Flushing [Recovered/Resolved]
  - Vomiting [Recovered/Resolved]
  - Heart rate increased [Recovered/Resolved]

NARRATIVE: CASE EVENT DATE: 20190308
